FAERS Safety Report 24844590 (Version 1)
Quarter: 2025Q1

REPORT INFORMATION
  Report Type: Spontaneous
  Country: US (occurrence: US)
  Receive Date: 20250115
  Receipt Date: 20250115
  Transmission Date: 20250408
  Serious: Yes (Other)
  Sender: SANOFI AVENTIS
  Company Number: US-SA-2025SA012049

PATIENT
  Age: 77 Year
  Sex: Female
  Weight: 102.73 kg

DRUGS (21)
  1. DUPIXENT [Suspect]
     Active Substance: DUPILUMAB
     Indication: Dermatitis atopic
     Dosage: 300 MG, QOW
     Route: 058
  2. GARLIC [Concomitant]
     Active Substance: GARLIC
  3. LORATADINE [Concomitant]
     Active Substance: LORATADINE
  4. MOVE FREE JOINT HEALTH [Concomitant]
  5. CENTRUM SILVER [ASCORBIC ACID;BIOTIN;CALCIUM;CALCIUM PHOSPHATE DIBASIC [Concomitant]
  6. TYLENOL [Concomitant]
     Active Substance: ACETAMINOPHEN
  7. LOSARTAN POTASSIUM [Concomitant]
     Active Substance: LOSARTAN POTASSIUM
  8. LOSARTAN POTASSIUM [Concomitant]
     Active Substance: LOSARTAN POTASSIUM
  9. FUROSEMIDE [Concomitant]
     Active Substance: FUROSEMIDE
  10. MYRBETRIQ [Concomitant]
     Active Substance: MIRABEGRON
  11. LORATADINE [Concomitant]
     Active Substance: LORATADINE
  12. ESCITALOPRAM OXALATE [Concomitant]
     Active Substance: ESCITALOPRAM OXALATE
  13. PRAVASTATIN SODIUM [Concomitant]
     Active Substance: PRAVASTATIN SODIUM
  14. DOXEPIN HYDROCHLORIDE [Concomitant]
     Active Substance: DOXEPIN HYDROCHLORIDE
  15. LORAZEPAM [Concomitant]
     Active Substance: LORAZEPAM
  16. DILTIAZEM [Concomitant]
     Active Substance: DILTIAZEM
  17. METFORMIN HYDROCHLORIDE [Concomitant]
     Active Substance: METFORMIN HYDROCHLORIDE
  18. PANTOPRAZOLE SODIUM [Concomitant]
     Active Substance: PANTOPRAZOLE SODIUM
  19. PROBIOTICS NOS [Concomitant]
     Active Substance: PROBIOTICS NOS
  20. VITAMINS NOS [Concomitant]
     Active Substance: VITAMINS
  21. FISH OIL [Concomitant]
     Active Substance: FISH OIL

REACTIONS (1)
  - Cerebrovascular accident [Unknown]

NARRATIVE: CASE EVENT DATE: 20240101
